FAERS Safety Report 13905379 (Version 1)
Quarter: 2017Q3

REPORT INFORMATION
  Report Type: Spontaneous
  Country: US (occurrence: US)
  Receive Date: 20170825
  Receipt Date: 20170825
  Transmission Date: 20171127
  Serious: No
  Sender: FDA-Public Use
  Company Number: US-TEVA-710551USA

PATIENT
  Sex: Female
  Weight: 73.55 kg

DRUGS (1)
  1. ALENDRONATE SODIUM. [Suspect]
     Active Substance: ALENDRONATE SODIUM

REACTIONS (3)
  - Bone pain [Unknown]
  - Drug dose omission [Unknown]
  - Faeces hard [Unknown]
